FAERS Safety Report 20053869 (Version 1)
Quarter: 2021Q4

REPORT INFORMATION
  Report Type: Spontaneous
  Country: TW (occurrence: TW)
  Receive Date: 20211110
  Receipt Date: 20211110
  Transmission Date: 20220303
  Serious: Yes (Hospitalization)
  Sender: FDA-Public Use
  Company Number: TW-PFIZER INC-202101472212

PATIENT

DRUGS (2)
  1. XELJANZ [Suspect]
     Active Substance: TOFACITINIB CITRATE
     Indication: Rheumatoid arthritis
  2. COVID-19 VACCINE NOS [Suspect]
     Active Substance: COVID-19 VACCINE NOS

REACTIONS (1)
  - Guillain-Barre syndrome [Unknown]
